FAERS Safety Report 11039756 (Version 2)
Quarter: 2015Q2

REPORT INFORMATION
  Report Type: Spontaneous
  Country: ML (occurrence: ML)
  Receive Date: 20150416
  Receipt Date: 20150429
  Transmission Date: 20150821
  Serious: Yes (Hospitalization, Other)
  Sender: FDA-Public Use
  Company Number: PHHY2015ML036584

PATIENT
  Sex: Male
  Weight: 59 kg

DRUGS (3)
  1. MODURETIC 5-50 [Concomitant]
     Active Substance: AMILORIDE HYDROCHLORIDE\HYDROCHLOROTHIAZIDE
     Indication: HYPERTENSION
     Dosage: 0.5 DF, QD
     Route: 048
     Dates: start: 2008, end: 20150311
  2. GLIVEC [Suspect]
     Active Substance: IMATINIB MESYLATE
     Indication: CHRONIC MYELOID LEUKAEMIA
     Dosage: 600 MG, UNK
     Route: 048
     Dates: start: 20080201, end: 20150306
  3. ATENOL [Concomitant]
     Active Substance: ATENOLOL
     Indication: HYPERTENSION
     Dosage: 1 DF, QD
     Route: 048
     Dates: start: 2008, end: 20150311

REACTIONS (12)
  - Vomiting [Unknown]
  - Malaria [Unknown]
  - Helicobacter gastritis [Unknown]
  - White blood cell count increased [Unknown]
  - Drug intolerance [Unknown]
  - Ulcer [Unknown]
  - Gastritis erosive [Unknown]
  - Cough [Unknown]
  - Haemoglobin decreased [Unknown]
  - Lung infection [Unknown]
  - Pyrexia [Unknown]
  - Body temperature increased [Unknown]
